FAERS Safety Report 21597218 (Version 1)
Quarter: 2022Q4

REPORT INFORMATION
  Report Type: Spontaneous
  Country: US (occurrence: US)
  Receive Date: 20221115
  Receipt Date: 20221115
  Transmission Date: 20230113
  Serious: No
  Sender: FDA-Public Use
  Company Number: US-PFIZER INC-202201296815

PATIENT
  Age: 44 Year
  Sex: Female

DRUGS (1)
  1. BOSULIF [Suspect]
     Active Substance: BOSUTINIB MONOHYDRATE
     Dosage: 1 DF, 1X/DAY
     Dates: start: 20221110

REACTIONS (3)
  - Lactose intolerance [Unknown]
  - Oral herpes [Unknown]
  - Insomnia [Unknown]

NARRATIVE: CASE EVENT DATE: 20221101
